FAERS Safety Report 13745100 (Version 1)
Quarter: 2017Q3

REPORT INFORMATION
  Report Type: Spontaneous
  Country: US (occurrence: US)
  Receive Date: 20170711
  Receipt Date: 20170711
  Transmission Date: 20171127
  Serious: Yes (Hospitalization, Disabling)
  Sender: FDA-Public Use
  Company Number: None

PATIENT
  Age: 41 Year
  Sex: Male

DRUGS (9)
  1. CLONAZEPAM. [Suspect]
     Active Substance: CLONAZEPAM
     Indication: ANXIETY
     Dosage: ?          QUANTITY:2 MILLIGRAMS;?
     Route: 048
  2. CYCLOBENZAPRINE. [Concomitant]
     Active Substance: CYCLOBENZAPRINE
  3. VALIUM [Concomitant]
     Active Substance: DIAZEPAM
  4. AMITRIPTYLINE [Concomitant]
     Active Substance: AMITRIPTYLINE
  5. VITAMIN B12 [Concomitant]
     Active Substance: CYANOCOBALAMIN
  6. HYDROCODONE [Concomitant]
     Active Substance: HYDROCODONE
  7. OMEPRAZOLE. [Concomitant]
     Active Substance: OMEPRAZOLE
  8. IBUPROFEN. [Concomitant]
     Active Substance: IBUPROFEN
  9. GABAPENTIN. [Concomitant]
     Active Substance: GABAPENTIN

REACTIONS (13)
  - Depression [None]
  - Suicidal ideation [None]
  - Poisoning [None]
  - Hypoaesthesia [None]
  - Paraesthesia [None]
  - Anxiety [None]
  - Job dissatisfaction [None]
  - Muscle spasms [None]
  - Intentional self-injury [None]
  - Fear [None]
  - Drug withdrawal syndrome [None]
  - Illusion [None]
  - Neuropathy peripheral [None]

NARRATIVE: CASE EVENT DATE: 20001010
